FAERS Safety Report 5748014-3 (Version None)
Quarter: 2008Q2

REPORT INFORMATION
  Report Type: 
  Country: None (occurrence: None)
  Receive Date: 20080523
  Receipt Date: 20080520
  Transmission Date: 20081010
  Serious: Yes (Hospitalization, Other)
  Sender: FDA-Public Use
  Company Number: US-BRISTOL-MYERS SQUIBB COMPANY-14198055

PATIENT
  Age: 71 Year
  Sex: Male

DRUGS (13)
  1. IPILIMUMAB [Suspect]
     Indication: MALIGNANT MELANOMA
     Route: 042
     Dates: start: 20080312, end: 20080402
  2. PREDNISONE TAB [Suspect]
     Indication: COLITIS
     Dosage: PREDNISONE TAPER.
  3. ASPIRIN [Concomitant]
  4. ATENOLOL [Concomitant]
  5. BACTRIM [Concomitant]
  6. CALCIUM + VITAMIN D [Concomitant]
  7. FOLATE [Concomitant]
  8. VITAMIN CAP [Concomitant]
  9. PRILOSEC [Concomitant]
  10. THIAMINE [Concomitant]
  11. ZETIA [Concomitant]
  12. LOMOTIL [Concomitant]
  13. IMODIUM [Concomitant]

REACTIONS (3)
  - DEHYDRATION [None]
  - INTESTINAL PERFORATION [None]
  - MYOPATHY STEROID [None]
